FAERS Safety Report 6172564-1 (Version None)
Quarter: 2009Q2

REPORT INFORMATION
  Report Type: 
  Country: None (occurrence: None)
  Receive Date: 20090428
  Receipt Date: 20081222
  Transmission Date: 20091009
  Serious: Yes (Hospitalization)
  Sender: FDA-Public Use
  Company Number: 2009MB000036

PATIENT
  Age: 80 Year
  Sex: Female
  Weight: 51.7101 kg

DRUGS (14)
  1. CEPHALEXIN [Suspect]
     Indication: CELLULITIS
     Dosage: PO
     Route: 048
     Dates: start: 20080201, end: 20080201
  2. HUMIRA [Suspect]
     Indication: RHEUMATOID ARTHRITIS
     Dosage: 40 MG; QW; SC
     Route: 058
     Dates: start: 20070314, end: 20080304
  3. ALENDRONATE SODIUM [Concomitant]
  4. AMLODIPINE MALEATE [Concomitant]
  5. CELECOXIB [Concomitant]
  6. FOLIC ACID [Concomitant]
  7. METHOTREXATE [Concomitant]
  8. PREDNISONE [Concomitant]
  9. TRIAMTERENE [Concomitant]
  10. CALCIUM SANDOZ  /00751501/ [Concomitant]
  11. OMEPRAZOLE SODIUM [Concomitant]
  12. PARACETAMOL [Concomitant]
  13. CLINDAMYCIN HCL [Suspect]
     Indication: CELLULITIS
     Dosage: PO; IV
     Route: 048
     Dates: start: 20080201, end: 20080201
  14. CLINDAMYCIN HCL [Suspect]
     Indication: CELLULITIS
     Dosage: PO; IV
     Route: 048
     Dates: start: 20080201, end: 20080201

REACTIONS (6)
  - CELLULITIS [None]
  - CLOSTRIDIAL INFECTION [None]
  - CULTURE STOOL POSITIVE [None]
  - DEHYDRATION [None]
  - HYPERKERATOSIS [None]
  - INFECTION [None]
